FAERS Safety Report 19673728 (Version 1)
Quarter: 2021Q3

REPORT INFORMATION
  Report Type: Spontaneous
  Country: CA (occurrence: CA)
  Receive Date: 20210808
  Receipt Date: 20210808
  Transmission Date: 20211014
  Serious: Yes (Life-Threatening, Hospitalization, Other)
  Sender: FDA-Public Use
  Company Number: None

PATIENT
  Age: 70 Year
  Sex: Female
  Weight: 60.75 kg

DRUGS (3)
  1. VITAMIN D3 [Concomitant]
     Active Substance: CHOLECALCIFEROL
  2. VENLAFAXINE ER 150MG [Concomitant]
     Active Substance: VENLAFAXINE HYDROCHLORIDE
  3. OXAZEPAM. [Suspect]
     Active Substance: OXAZEPAM
     Indication: INSOMNIA
     Dosage: ?          QUANTITY:2 TABLET(S);?
     Route: 048
     Dates: start: 20201121, end: 20210709

REACTIONS (14)
  - Muscle tightness [None]
  - Allergy to chemicals [None]
  - Loss of personal independence in daily activities [None]
  - Anxiety [None]
  - Gastrointestinal disorder [None]
  - Panic attack [None]
  - Suicide attempt [None]
  - Hyperacusis [None]
  - Overdose [None]
  - Tinnitus [None]
  - Depression [None]
  - Taste disorder [None]
  - Withdrawal syndrome [None]
  - Insomnia [None]

NARRATIVE: CASE EVENT DATE: 20201130
